FAERS Safety Report 19109296 (Version 3)
Quarter: 2022Q2

REPORT INFORMATION
  Report Type: Spontaneous
  Country: CH (occurrence: CH)
  Receive Date: 20210409
  Receipt Date: 20220622
  Transmission Date: 20220720
  Serious: Yes (Hospitalization, Other)
  Sender: FDA-Public Use
  Company Number: None

PATIENT
  Age: 61 Year
  Sex: Female

DRUGS (17)
  1. RIVAROXABAN [Suspect]
     Active Substance: RIVAROXABAN
     Indication: Product used for unknown indication
     Dosage: 10 MG, UNK
     Route: 048
     Dates: start: 202012, end: 202012
  2. CEFUROXIME [Suspect]
     Active Substance: CEFUROXIME
     Dosage: 1.5 G, UNK
     Route: 042
     Dates: start: 20201211, end: 202012
  3. PERFALGAN [Suspect]
     Active Substance: ACETAMINOPHEN
     Indication: Product used for unknown indication
     Dosage: 1 G, UNK
     Route: 065
     Dates: start: 20201211, end: 202012
  4. DAFALGAN [Suspect]
     Active Substance: ACETAMINOPHEN
     Indication: Product used for unknown indication
     Dosage: 1 G, UNK
     Route: 065
     Dates: start: 20201211, end: 202012
  5. CHIROCAINE [Suspect]
     Active Substance: LEVOBUPIVACAINE HYDROCHLORIDE
     Indication: Product used for unknown indication
     Dosage: 100 MG, UNK
     Route: 065
     Dates: start: 20201211, end: 202012
  6. IBUPROFEN [Suspect]
     Active Substance: IBUPROFEN
     Indication: Product used for unknown indication
     Dosage: 400 MG, UNK
     Route: 065
     Dates: start: 202012, end: 202012
  7. BRIDION [Suspect]
     Active Substance: SUGAMMADEX
     Indication: Product used for unknown indication
     Dosage: 200 MG, UNK
     Route: 042
     Dates: start: 20201211, end: 202012
  8. TRANEXAMIC ACID [Concomitant]
     Active Substance: TRANEXAMIC ACID
     Dates: start: 20201211, end: 202012
  9. CANDESARTAN [Concomitant]
     Active Substance: CANDESARTAN
  10. CLONIDINE [Concomitant]
     Active Substance: CLONIDINE
     Dates: start: 20201211, end: 202012
  11. FENTANYL [Concomitant]
     Active Substance: FENTANYL
     Dates: start: 20201211, end: 202012
  12. TORADOL [Concomitant]
     Active Substance: KETOROLAC TROMETHAMINE
     Dates: start: 20201211, end: 202012
  13. RAPIDOCAIN [LIDOCAINE HYDROCHLORIDE] [Concomitant]
     Dates: start: 20201211, end: 202012
  14. PROPOFOL [Concomitant]
     Active Substance: PROPOFOL
     Dates: start: 20201211, end: 20201211
  15. ROCURONIUM BROMIDE [Concomitant]
     Active Substance: ROCURONIUM BROMIDE
     Dates: start: 20201211, end: 20201211
  16. ROPIVACAINE HYDROCHLORIDE [Concomitant]
     Active Substance: ROPIVACAINE HYDROCHLORIDE
     Dates: start: 20201211, end: 202012
  17. NOVALGIN (METAMIZOLE SODIUM) [Concomitant]
     Active Substance: METAMIZOLE SODIUM
     Dates: start: 20201211, end: 202012

REACTIONS (4)
  - Liver function test abnormal [Recovered/Resolved]
  - Cholestasis [Recovered/Resolved]
  - Normochromic normocytic anaemia [Recovered/Resolved]
  - Supraventricular tachycardia [Recovered/Resolved]

NARRATIVE: CASE EVENT DATE: 20201217
